FAERS Safety Report 7026974-0 (Version None)
Quarter: 2010Q3

REPORT INFORMATION
  Report Type: 
  Country: None (occurrence: None)
  Receive Date: 20100929
  Receipt Date: 20100915
  Transmission Date: 20110219
  Serious: Yes (Disabling)
  Sender: FDA-Public Use
  Company Number: TPA2010A05084

PATIENT
  Age: 85 Year
  Sex: Female

DRUGS (6)
  1. ADENURIC (FEBUXOSTAT) [Suspect]
     Indication: HYPERURICAEMIA
     Dosage: 80 MG, PER ORAL
     Route: 048
     Dates: start: 20100709
  2. COLCHICINE [Suspect]
     Indication: HYPERURICAEMIA
     Dosage: 1 MG, 1 IN 1 D, PER ORAL
     Route: 048
     Dates: start: 20100707
  3. PRETERAX (INDAPAMIDE, PERINDOPRIL ERBUMINE) [Concomitant]
  4. ATORVASTATIN CALCIUM [Concomitant]
  5. KARDEGIC (ACETYLSALICYLATE LYSINE) [Concomitant]
  6. CALCIPARINE [Concomitant]

REACTIONS (2)
  - HALLUCINATION [None]
  - ISCHAEMIC STROKE [None]
